FAERS Safety Report 12191348 (Version 2)
Quarter: 2016Q2

REPORT INFORMATION
  Report Type: Report from Study
  Country: US (occurrence: US)
  Receive Date: 20160318
  Receipt Date: 20160616
  Transmission Date: 20160815
  Serious: Yes (Hospitalization, Other)
  Sender: FDA-Public Use
  Company Number: US-ACTELION-A-US2016-133012

PATIENT
  Age: 52 Year
  Sex: Female

DRUGS (18)
  1. CARDIZEM [Suspect]
     Active Substance: DILTIAZEM HYDROCHLORIDE
     Indication: PRODUCT USED FOR UNKNOWN INDICATION
     Route: 065
  2. SILDENAFIL. [Concomitant]
     Active Substance: SILDENAFIL
  3. LAMICTAL [Concomitant]
     Active Substance: LAMOTRIGINE
  4. LATUDA [Concomitant]
     Active Substance: LURASIDONE HYDROCHLORIDE
  5. KLONOPIN [Concomitant]
     Active Substance: CLONAZEPAM
  6. ZAROXOLYN [Concomitant]
     Active Substance: METOLAZONE
  7. SINGULAIR [Concomitant]
     Active Substance: MONTELUKAST SODIUM
  8. OPSUMIT [Suspect]
     Active Substance: MACITENTAN
     Indication: PULMONARY ARTERIAL HYPERTENSION
     Dosage: 10 MG, QD
     Route: 048
     Dates: start: 2014
  9. PROAIR HFA [Concomitant]
     Active Substance: ALBUTEROL SULFATE
  10. FLEXERIL [Concomitant]
     Active Substance: CYCLOBENZAPRINE HYDROCHLORIDE
  11. VOLTAREN [Concomitant]
     Active Substance: DICLOFENAC SODIUM
  12. SYNTHROID [Concomitant]
     Active Substance: LEVOTHYROXINE SODIUM
  13. LITHIUM. [Concomitant]
     Active Substance: LITHIUM
  14. NEXIUM [Concomitant]
     Active Substance: ESOMEPRAZOLE MAGNESIUM
  15. VYVANSE [Concomitant]
     Active Substance: LISDEXAMFETAMINE DIMESYLATE
  16. MINOCIN [Concomitant]
     Active Substance: MINOCYCLINE HYDROCHLORIDE
  17. ADCIRCA [Concomitant]
     Active Substance: TADALAFIL
  18. VITAMIN D [Concomitant]
     Active Substance: CHOLECALCIFEROL

REACTIONS (11)
  - Palpitations [Unknown]
  - Weight decreased [Unknown]
  - Condition aggravated [Unknown]
  - Decreased appetite [Unknown]
  - Loss of consciousness [Unknown]
  - Fluid retention [Recovered/Resolved]
  - Chest pain [Unknown]
  - Weight increased [Recovered/Resolved]
  - Oxygen supplementation [Unknown]
  - Dyspnoea [Recovered/Resolved]
  - Generalised oedema [Recovered/Resolved]

NARRATIVE: CASE EVENT DATE: 2015
